FAERS Safety Report 9233844 (Version 1)
Quarter: 2013Q2

REPORT INFORMATION
  Report Type: Spontaneous
  Country: US (occurrence: US)
  Receive Date: 20130416
  Receipt Date: 20130416
  Transmission Date: 20140414
  Serious: No
  Sender: FDA-Public Use
  Company Number: US-BANPHARM-20120091

PATIENT
  Age: 41 Year
  Sex: Female
  Weight: 68.48 kg

DRUGS (7)
  1. ALEVE LIQUID GELS 220 MG [Suspect]
     Indication: ARTHRITIS
     Dosage: 2 DF, BID,
     Route: 048
     Dates: start: 200501
  2. EFFEXOR [Concomitant]
  3. FLEXERIL [Concomitant]
  4. KLONOPIN [Concomitant]
  5. VISTARIL [Concomitant]
  6. SILVER SULFADIAZINE CREAM [Concomitant]
     Route: 061
  7. MULTIVITAMIN [Concomitant]

REACTIONS (2)
  - Drug effect incomplete [Unknown]
  - Incorrect dose administered [Unknown]
